FAERS Safety Report 17655860 (Version 1)
Quarter: 2020Q2

REPORT INFORMATION
  Report Type: Spontaneous
  Country: US (occurrence: US)
  Receive Date: 20200409
  Receipt Date: 20200409
  Transmission Date: 20200713
  Serious: Yes (Hospitalization)
  Sender: FDA-Public Use
  Company Number: None

PATIENT
  Age: 61 Year
  Sex: Female

DRUGS (9)
  1. METOPROLOL TARTRATE. [Concomitant]
     Active Substance: METOPROLOL TARTRATE
  2. OXYCODONE AND ACETAMINOPHEN [Concomitant]
     Active Substance: ACETAMINOPHEN\OXYCODONE HYDROCHLORIDE
  3. SPIRIVA [Concomitant]
     Active Substance: TIOTROPIUM BROMIDE MONOHYDRATE
  4. VOTRIENT [Suspect]
     Active Substance: PAZOPANIB HYDROCHLORIDE
     Indication: RENAL CANCER
     Dosage: ?          OTHER DOSE:4-200MG TABS;?
     Route: 048
     Dates: start: 20190719
  5. ALPRAZOLAM. [Concomitant]
     Active Substance: ALPRAZOLAM
  6. FOSINOPRIL [Concomitant]
     Active Substance: FOSINOPRIL
  7. TRAMADOL. [Concomitant]
     Active Substance: TRAMADOL
  8. GABAPENTIN. [Concomitant]
     Active Substance: GABAPENTIN
  9. GLYBURIDE. [Concomitant]
     Active Substance: GLYBURIDE

REACTIONS (2)
  - Toe amputation [None]
  - Localised infection [None]

NARRATIVE: CASE EVENT DATE: 20200301
